FAERS Safety Report 4814044-9 (Version None)
Quarter: 2005Q4

REPORT INFORMATION
  Report Type: 
  Country: None (occurrence: None)
  Receive Date: 20051028
  Receipt Date: 20050622
  Transmission Date: 20060501
  Serious: Yes (Other)
  Sender: FDA-Public Use
  Company Number: US-GLAXOSMITHKLINE-A0563965A

PATIENT
  Age: 66 Year
  Sex: Female

DRUGS (4)
  1. SEREVENT [Suspect]
     Indication: ASTHMA
     Route: 055
     Dates: start: 20020101, end: 20020101
  2. ALBUTEROL [Concomitant]
  3. PHENOBARBITAL TAB [Concomitant]
  4. VALIUM [Concomitant]

REACTIONS (1)
  - CHOKING [None]
